FAERS Safety Report 9373166 (Version 2)
Quarter: 2013Q3

REPORT INFORMATION
  Report Type: Report from Study
  Country: JP (occurrence: JP)
  Receive Date: 20130627
  Receipt Date: 20130823
  Transmission Date: 20140515
  Serious: Yes (Hospitalization, Other)
  Sender: FDA-Public Use
  Company Number: PHHY2013JP064976

PATIENT
  Sex: Male
  Weight: 64 kg

DRUGS (5)
  1. AFINITOR [Suspect]
     Indication: METASTATIC RENAL CELL CARCINOMA
     Dosage: 10 MG, DAILY
     Route: 048
     Dates: start: 20100616, end: 20100927
  2. INTERFERON ALFA [Concomitant]
     Indication: METASTATIC RENAL CELL CARCINOMA
     Dosage: 600 KIU
     Dates: start: 20080514, end: 20081013
  3. SUNITINIB MALATE [Concomitant]
     Indication: METASTATIC RENAL CELL CARCINOMA
     Dosage: 800 MG
     Route: 048
     Dates: start: 20081014, end: 20100614
  4. AMLOD [Concomitant]
     Dosage: 10 MG
     Route: 048
     Dates: start: 20081017, end: 20100712
  5. PARIET [Concomitant]
     Dosage: 10 MG
     Route: 048
     Dates: start: 20081020, end: 20100712

REACTIONS (2)
  - Gastric cancer [Unknown]
  - Second primary malignancy [Unknown]
